FAERS Safety Report 24703151 (Version 3)
Quarter: 2025Q1

REPORT INFORMATION
  Report Type: Spontaneous
  Country: FR (occurrence: FR)
  Receive Date: 20241205
  Receipt Date: 20250115
  Transmission Date: 20250409
  Serious: Yes (Death, Hospitalization)
  Sender: PFIZER
  Company Number: FR-PFIZER INC-202400316652

PATIENT
  Age: 65 Year
  Sex: Female
  Weight: 103 kg

DRUGS (2)
  1. ELREXFIO [Suspect]
     Active Substance: ELRANATAMAB-BCMM
     Indication: Plasma cell myeloma
     Dosage: 12 MG, 1X/DAY,  C1D1
     Route: 058
     Dates: start: 20241122, end: 20241122
  2. ZOMETA [Concomitant]
     Active Substance: ZOLEDRONIC ACID
     Indication: Bone lesion
     Dates: start: 20241114, end: 20241114

REACTIONS (6)
  - Cardio-respiratory arrest [Fatal]
  - Oxygen saturation decreased [Fatal]
  - Hypercalcaemia of malignancy [Fatal]
  - Fatigue [Recovering/Resolving]
  - Myalgia [Recovering/Resolving]
  - General physical health deterioration [Recovering/Resolving]

NARRATIVE: CASE EVENT DATE: 20240101
